FAERS Safety Report 5445024-0 (Version None)
Quarter: 2007Q3

REPORT INFORMATION
  Report Type: 
  Country: None (occurrence: None)
  Receive Date: 20070906
  Receipt Date: 20070829
  Transmission Date: 20080115
  Serious: Yes (Hospitalization, Other)
  Sender: FDA-Public Use
  Company Number: US-ELI_LILLY_AND_COMPANY-US200708006836

PATIENT
  Age: 35 Year
  Sex: Male

DRUGS (2)
  1. ZYPREXA [Suspect]
     Dosage: UNK, UNK
     Route: 030
     Dates: start: 20070801
  2. ATIVAN [Concomitant]
     Dates: start: 20070801

REACTIONS (4)
  - AGITATION [None]
  - APNOEA [None]
  - OVERDOSE [None]
  - RESPIRATORY DEPRESSION [None]
